FAERS Safety Report 24140590 (Version 1)
Quarter: 2024Q3

REPORT INFORMATION
  Report Type: Spontaneous
  Country: US (occurrence: US)
  Receive Date: 20240726
  Receipt Date: 20240726
  Transmission Date: 20241016
  Serious: Yes (Hospitalization)
  Sender: MYLAN
  Company Number: US-MYLANLABS-2024M1069227

PATIENT
  Age: 5 Decade
  Sex: Male

DRUGS (1)
  1. ESTRADIOL [Suspect]
     Active Substance: ESTRADIOL
     Indication: Transgender hormonal therapy
     Dosage: 20 MILLIGRAM, EVERY 14 DAYS
     Route: 065

REACTIONS (1)
  - Phyllodes tumour [Recovered/Resolved]
